FAERS Safety Report 13701197 (Version 1)
Quarter: 2017Q2

REPORT INFORMATION
  Report Type: Spontaneous
  Country: US (occurrence: US)
  Receive Date: 20170629
  Receipt Date: 20170629
  Transmission Date: 20170830
  Serious: No
  Sender: FDA-Public Use
  Company Number: US-JNJFOC-20170501318

PATIENT
  Sex: Female
  Weight: 113.4 kg

DRUGS (6)
  1. FLEXERIL [Suspect]
     Active Substance: CYCLOBENZAPRINE HYDROCHLORIDE
     Indication: MUSCLE SPASMS
     Route: 048
  2. PARAFON FORTE [Suspect]
     Active Substance: CHLORZOXAZONE
     Indication: MUSCLE SPASMS
     Dosage: 1.5-2 CAPLETS, AS NEEDED BASIS
     Route: 048
     Dates: start: 2005, end: 2012
  3. PARAFON FORTE [Suspect]
     Active Substance: CHLORZOXAZONE
     Indication: MUSCLE TIGHTNESS
     Dosage: 1.5-2 CAPLETS, AS NEEDED BASIS
     Route: 048
     Dates: start: 2005, end: 2012
  4. FLEXERIL [Suspect]
     Active Substance: CYCLOBENZAPRINE HYDROCHLORIDE
     Indication: MUSCLE SPASMS
     Route: 048
     Dates: start: 2012, end: 2012
  5. PARAFON FORTE [Suspect]
     Active Substance: CHLORZOXAZONE
     Indication: MUSCLE TIGHTNESS
     Dosage: AS NEEDED BASIS
     Route: 048
  6. PARAFON FORTE [Suspect]
     Active Substance: CHLORZOXAZONE
     Indication: MUSCLE SPASMS
     Dosage: AS NEEDED BASIS
     Route: 048

REACTIONS (3)
  - Incorrect dose administered [Unknown]
  - Drug ineffective [Unknown]
  - Off label use [Unknown]
